FAERS Safety Report 8849545 (Version 1)
Quarter: 2012Q4

REPORT INFORMATION
  Report Type: 
  Country: UA (occurrence: UA)
  Receive Date: 20121019
  Receipt Date: 20121019
  Transmission Date: 20130627
  Serious: Yes (Other)
  Sender: FDA-Public Use
  Company Number: UA-PFIZER INC-2012256067

PATIENT
  Age: 30 Year
  Sex: Female

DRUGS (1)
  1. DEPO-PROVERA [Suspect]
     Indication: CONTRACEPTION
     Dosage: 150 mg, single
     Route: 030
     Dates: start: 20120907, end: 20120907

REACTIONS (3)
  - Blood pressure increased [Recovered/Resolved]
  - Headache [Recovered/Resolved]
  - Dizziness [Recovered/Resolved]
